FAERS Safety Report 15745495 (Version 1)
Quarter: 2018Q4

REPORT INFORMATION
  Report Type: Spontaneous
  Country: GB (occurrence: GB)
  Receive Date: 20181220
  Receipt Date: 20181220
  Transmission Date: 20190205
  Serious: Yes (Hospitalization, Other)
  Sender: FDA-Public Use
  Company Number: GB-SHR-GB-2007-042631

PATIENT
  Age: 47 Year
  Sex: Male

DRUGS (6)
  1. FLUDARABINE PHOSPHATE. [Suspect]
     Active Substance: FLUDARABINE PHOSPHATE
     Indication: CHRONIC MYELOID LEUKAEMIA
     Dosage: UNK UNK,UNK
  2. RASBURICASE [Suspect]
     Active Substance: RASBURICASE
     Indication: CHRONIC MYELOID LEUKAEMIA
  3. RASBURICASE [Suspect]
     Active Substance: RASBURICASE
     Indication: PROPHYLAXIS
  4. ARA-C [Suspect]
     Active Substance: CYTARABINE
     Indication: CHRONIC MYELOID LEUKAEMIA
  5. IDARUBICIN [Suspect]
     Active Substance: IDARUBICIN
     Indication: CHRONIC MYELOID LEUKAEMIA
  6. ALLOPURINOL. [Suspect]
     Active Substance: ALLOPURINOL
     Indication: CHRONIC MYELOID LEUKAEMIA

REACTIONS (2)
  - Tumour lysis syndrome [Recovered/Resolved]
  - Acute kidney injury [Recovered/Resolved]
